FAERS Safety Report 4696706-X (Version None)
Quarter: 2005Q2

REPORT INFORMATION
  Report Type: 
  Country: None (occurrence: None)
  Receive Date: 20050622
  Receipt Date: 20050608
  Transmission Date: 20051028
  Serious: Yes (Hospitalization)
  Sender: FDA-Public Use
  Company Number: FR-BOEHRINGER INGELHEIM PHARMACEUTICALS, INC.-2005-BP-10423YA

PATIENT
  Sex: Male

DRUGS (8)
  1. OMIX (TAMSULOSIN HYDROCHLORIDE) [Suspect]
     Indication: ILL-DEFINED DISORDER
     Route: 048
  2. TAHOR [Suspect]
     Indication: HYPERCHOLESTEROLAEMIA
     Route: 048
     Dates: start: 19990101, end: 20031103
  3. TAHOR [Suspect]
     Route: 048
     Dates: start: 20040119, end: 20050225
  4. PIROXICAM [Suspect]
     Dates: start: 20050410
  5. PIROXICAM [Suspect]
     Indication: SCIATICA
     Dates: start: 20050410
  6. PREVISCAN [Suspect]
     Indication: ILL-DEFINED DISORDER
  7. COUMADIN [Suspect]
     Indication: ILL-DEFINED DISORDER
     Dates: start: 20031212
  8. FOLIC ACID [Concomitant]
     Indication: BLOOD FOLATE DECREASED

REACTIONS (9)
  - DRUG HYPERSENSITIVITY [None]
  - DRUG INTOLERANCE [None]
  - EOSINOPHILIA [None]
  - HAEMORRHAGIC STROKE [None]
  - LIVER DISORDER [None]
  - PANCREATIC DISORDER [None]
  - PRURITUS [None]
  - PULMONARY EMBOLISM [None]
  - RASH [None]
